FAERS Safety Report 17496649 (Version 2)
Quarter: 2020Q1

REPORT INFORMATION
  Report Type: Report from Study
  Country: NL (occurrence: NL)
  Receive Date: 20200304
  Receipt Date: 20200313
  Transmission Date: 20200409
  Serious: Yes (Hospitalization)
  Sender: FDA-Public Use
  Company Number: NVSC2020NL060416

PATIENT
  Age: 56 Year
  Sex: Female

DRUGS (5)
  1. LEMTRADA [Concomitant]
     Active Substance: ALEMTUZUMAB
     Indication: MULTIPLE SCLEROSIS
     Dosage: 12 MG
     Route: 042
     Dates: start: 20190204
  2. BACLOFEN. [Concomitant]
     Active Substance: BACLOFEN
     Indication: MUSCLE SPASMS
     Dosage: 5 MG, QW
     Route: 065
     Dates: start: 20141217
  3. GABAPENTIN. [Concomitant]
     Active Substance: GABAPENTIN
     Indication: NEURALGIA
     Dosage: 600 MG, OTHER (4 DD)
     Route: 065
     Dates: start: 20150527
  4. GILENYA [Suspect]
     Active Substance: FINGOLIMOD HYDROCHLORIDE
     Indication: MULTIPLE SCLEROSIS
     Dosage: UNK
     Route: 065
     Dates: start: 20150206, end: 20180508
  5. CHOLECALCIFEROL [Concomitant]
     Active Substance: CHOLECALCIFEROL
     Indication: VITAMIN D
     Dosage: 5600 IU
     Route: 065
     Dates: start: 20190307

REACTIONS (9)
  - Abdominal pain [Unknown]
  - Cholangitis infective [Recovering/Resolving]
  - Abdominal pain upper [Unknown]
  - Murphy^s sign positive [Unknown]
  - Psoriasis [Unknown]
  - Inflammatory marker increased [Unknown]
  - JC polyomavirus test positive [Not Recovered/Not Resolved]
  - Cholelithiasis [Recovering/Resolving]
  - End stage renal disease [Recovered/Resolved]

NARRATIVE: CASE EVENT DATE: 201912
